FAERS Safety Report 18246968 (Version 1)
Quarter: 2020Q3

REPORT INFORMATION
  Report Type: Spontaneous
  Country: EG (occurrence: EG)
  Receive Date: 20200909
  Receipt Date: 20200909
  Transmission Date: 20201103
  Serious: Yes (Life-Threatening, Hospitalization)
  Sender: FDA-Public Use
  Company Number: EG-ELI_LILLY_AND_COMPANY-EG202009002967

PATIENT
  Age: 52 Year
  Sex: Female

DRUGS (1)
  1. CYRAMZA [Suspect]
     Active Substance: RAMUCIRUMAB
     Indication: PRODUCT USED FOR UNKNOWN INDICATION
     Dosage: UNK UNK, UNKNOWN
     Route: 065

REACTIONS (6)
  - Chills [Unknown]
  - Dyspnoea [Unknown]
  - Pyrexia [Unknown]
  - Bronchospasm [Unknown]
  - Flushing [Unknown]
  - Hypertension [Unknown]
